FAERS Safety Report 4835825-1 (Version None)
Quarter: 2005Q4

REPORT INFORMATION
  Report Type: 
  Country: None (occurrence: None)
  Receive Date: 20051117
  Receipt Date: 20051111
  Transmission Date: 20060501
  Serious: Yes (Hospitalization)
  Sender: FDA-Public Use
  Company Number: 200511052BVD

PATIENT

DRUGS (1)
  1. AVELOX [Suspect]

REACTIONS (1)
  - PNEUMONIA [None]
